FAERS Safety Report 18553604 (Version 3)
Quarter: 2022Q1

REPORT INFORMATION
  Report Type: Spontaneous
  Country: JP (occurrence: JP)
  Receive Date: 20201127
  Receipt Date: 20220207
  Transmission Date: 20220423
  Serious: Yes (Death, Hospitalization, Other)
  Sender: FDA-Public Use
  Company Number: JP-LUNDBECK-DKLU3024384

PATIENT
  Sex: Female
  Weight: 63 kg

DRUGS (27)
  1. ESCITALOPRAM OXALATE [Suspect]
     Active Substance: ESCITALOPRAM OXALATE
     Indication: Depression
     Dosage: 10 MG, QD, AFTER DINNER
     Route: 048
     Dates: start: 20190705, end: 20190708
  2. NORTRIPTYLINE [Suspect]
     Active Substance: NORTRIPTYLINE
     Indication: Pain management
     Dosage: 20 MG, QD, BEFORE BEDTIME
     Route: 048
     Dates: start: 20190712, end: 20190805
  3. NORTRIPTYLINE [Suspect]
     Active Substance: NORTRIPTYLINE
     Dosage: 20 MG, QD
     Route: 050
     Dates: start: 20190705, end: 20190708
  4. MICONAZOLE [Suspect]
     Active Substance: MICONAZOLE
     Indication: Product used for unknown indication
     Dosage: 1 G
     Route: 049
     Dates: end: 20190705
  5. REFLEX [Suspect]
     Active Substance: MIRTAZAPINE
     Indication: Restless legs syndrome
     Dosage: 30 MG, QD
     Route: 048
     Dates: start: 20190705, end: 20190708
  6. BROTIZOLAM [Suspect]
     Active Substance: BROTIZOLAM
     Indication: Product used for unknown indication
     Dosage: 0.25 MG, QD, BEFORE BEDTIME
     Route: 048
     Dates: start: 20190705, end: 20190710
  7. GABAPENTIN ENACARBIL [Concomitant]
     Active Substance: GABAPENTIN ENACARBIL
     Indication: Product used for unknown indication
     Dosage: 600 MG, QD, AFTER DINNER
     Dates: end: 20190705
  8. ACETAMINOPHEN [Concomitant]
     Active Substance: ACETAMINOPHEN
     Indication: Pain management
     Dosage: 500 MG, QID, AFTER EACH MEAL AND DEFORE BEDTIME
     Dates: end: 20190705
  9. PROCHLORPERAZINE MALEATE [Concomitant]
     Active Substance: PROCHLORPERAZINE MALEATE
     Indication: Product used for unknown indication
     Dosage: 5 MG, TID, AFTER EACH MEAL
  10. TRAMADOL HYDROCHLORIDE [Concomitant]
     Active Substance: TRAMADOL HYDROCHLORIDE
     Indication: Pain management
     Dosage: 400 MG, QD, BEFORE BEDTIME
     Dates: start: 20190705
  11. NAUZELIN [Concomitant]
     Active Substance: DOMPERIDONE
     Dosage: 10 MG, TID AFTER EACH MEAL
     Dates: end: 20190705
  12. GABAPENTIN ENACARBIL [Concomitant]
     Active Substance: GABAPENTIN ENACARBIL
     Dosage: UNK UNK, UNKNOWN
     Dates: end: 20190705
  13. CALONAL [Concomitant]
     Active Substance: ACETAMINOPHEN
     Dosage: 500 MG, Q6HR
     Dates: end: 20190705
  14. LORATADINE [Concomitant]
     Active Substance: LORATADINE
     Dosage: 10 MG, QD
     Dates: end: 20190705
  15. PROCHLORPERAZINE [Concomitant]
     Active Substance: PROCHLORPERAZINE
     Dosage: 5 MG, Q8HR
     Dates: end: 20190705
  16. LINACLOTIDE [Concomitant]
     Active Substance: LINACLOTIDE
     Dosage: 0.25 MG, QD, BEFORE REAKFAST
     Dates: end: 20190705
  17. POLYSILO [Concomitant]
     Dosage: 80 MG, TID, AFTER EACH MEAL
     Dates: end: 20190705
  18. SENNA LEAF [Concomitant]
     Active Substance: SENNA LEAF
     Dosage: 9 TABLETS, TID, AFTER EACH MEAL
     Dates: end: 20190705
  19. MAGNESIUM OXIDE [Concomitant]
     Active Substance: MAGNESIUM OXIDE
     Dosage: 500 MG, TID, AFTER EACH MEAL
     Dates: end: 20190705
  20. DEQUALINIUM CHLORIDE [Concomitant]
     Active Substance: DEQUALINIUM CHLORIDE
     Dosage: 0.25 MG, BID
     Dates: end: 20190705
  21. METOCLOPRAMIDE [Concomitant]
     Active Substance: METOCLOPRAMIDE
     Dosage: 1 TABLET
     Route: 048
     Dates: end: 20190705
  22. BETAHISTINE MESILATE [Concomitant]
     Active Substance: BETAHISTINE MESILATE
     Dosage: 6 MG, TID, BEFORE EACH MEAL
     Dates: end: 20190705
  23. BETAHISTINE MESILATE [Concomitant]
     Active Substance: BETAHISTINE MESILATE
     Dosage: 6 MG, TID, BEFORE EACH MEAL
     Dates: end: 20190705
  24. CELESTAMINE F [Concomitant]
     Dosage: 2 TABLETS, QD, BEFORE BEDTIME
     Dates: end: 20190705
  25. PROCATEROL HYDROCHLORIDE [Concomitant]
     Active Substance: PROCATEROL HYDROCHLORIDE
     Indication: Asthma
     Dosage: ONE PUFF DURING ASTHMATIC ATTACK
     Dates: end: 20190705
  26. LOXOPROFEN SODIUM DIHYDRATE [Concomitant]
     Active Substance: LOXOPROFEN SODIUM DIHYDRATE
     Dosage: UNK
     Route: 048
     Dates: end: 20190705
  27. GASCON [DIMETICONE] [Concomitant]
     Dosage: 1 TABLET
     Route: 048
     Dates: end: 20190705

REACTIONS (5)
  - Thalamus haemorrhage [Unknown]
  - Distributive shock [Unknown]
  - Septic shock [Fatal]
  - Serotonin syndrome [Recovered/Resolved]
  - Overdose [Unknown]

NARRATIVE: CASE EVENT DATE: 20190704
